FAERS Safety Report 22267070 (Version 1)
Quarter: 2023Q2

REPORT INFORMATION
  Report Type: Spontaneous
  Country: US (occurrence: None)
  Receive Date: 20230427
  Receipt Date: 20230427
  Transmission Date: 20230722
  Serious: Yes (Death)
  Sender: FDA-Public Use
  Company Number: None

PATIENT
  Age: 62 Year
  Sex: Male

DRUGS (16)
  1. ENVARSUS XR [Suspect]
     Active Substance: TACROLIMUS
     Indication: Liver transplant
     Dosage: OTHER FREQUENCY : EVERY MORNING;?
     Route: 048
     Dates: start: 20211019, end: 20230422
  2. AMBIEN [Concomitant]
  3. BENADRYL [Concomitant]
     Active Substance: DIPHENHYDRAMINE HYDROCHLORIDE
  4. BETAMETHASONE DIPROPIONATE [Concomitant]
     Active Substance: BETAMETHASONE DIPROPIONATE
  5. GABAPENTIN [Concomitant]
     Active Substance: GABAPENTIN
  6. IMATINIB MESYLATE [Concomitant]
     Active Substance: IMATINIB MESYLATE
  7. METOPROLOL TARTRATE [Concomitant]
     Active Substance: METOPROLOL TARTRATE
  8. MIDODRINE [Concomitant]
     Active Substance: MIDODRINE
  9. PREDNISONE [Concomitant]
     Active Substance: PREDNISONE
  10. RENO [Concomitant]
  11. RENVELA POW [Concomitant]
  12. ROPINIROLE [Concomitant]
     Active Substance: ROPINIROLE
  13. TYLENOL [Concomitant]
     Active Substance: ACETAMINOPHEN
  14. URSODIOL [Concomitant]
  15. VITAMIN D [Concomitant]
     Active Substance: VITAMIN D NOS
  16. ZYRTEC ALLGY [Concomitant]

REACTIONS (1)
  - Death [None]

NARRATIVE: CASE EVENT DATE: 20230422
